FAERS Safety Report 4388291-7 (Version None)
Quarter: 2004Q2

REPORT INFORMATION
  Report Type: 
  Country: None (occurrence: None)
  Receive Date: 20040625
  Receipt Date: 20040607
  Transmission Date: 20050107
  Serious: Yes (Death, Hospitalization)
  Sender: FDA-Public Use
  Company Number: ATO-04-0555

PATIENT
  Age: 78 Year
  Sex: Male

DRUGS (6)
  1. TRISENOX [Suspect]
     Indication: MYELODYSPLASTIC SYNDROME
     Dosage: (25 MG/KG, DAILY X 5 DAYS) IVI
     Route: 042
     Dates: start: 20040525, end: 20040528
  2. ZYPREXA [Concomitant]
  3. FOLIC ACID [Concomitant]
  4. VITAMIN B6 [Concomitant]
  5. ATENOLOL [Concomitant]
  6. VITAMIN C (ASCORBIC ACID) [Concomitant]

REACTIONS (11)
  - ANAEMIA [None]
  - BLOOD PRESSURE DIASTOLIC DECREASED [None]
  - DIARRHOEA [None]
  - ELECTROCARDIOGRAM QT PROLONGED [None]
  - FALL [None]
  - HYPOVOLAEMIA [None]
  - MARKEDLY REDUCED DIETARY INTAKE [None]
  - MYOCARDIAL INFARCTION [None]
  - PLATELET COUNT DECREASED [None]
  - SINUS TACHYCARDIA [None]
  - SUPRAVENTRICULAR EXTRASYSTOLES [None]
